FAERS Safety Report 10135892 (Version 1)
Quarter: 2014Q2

REPORT INFORMATION
  Report Type: Spontaneous
  Country: US (occurrence: US)
  Receive Date: 20140429
  Receipt Date: 20140429
  Transmission Date: 20141212
  Serious: Yes (Hospitalization)
  Sender: FDA-Public Use
  Company Number: US-ROCHE-1390536

PATIENT
  Age: 67 Year
  Sex: Male

DRUGS (6)
  1. ACTIVASE [Suspect]
     Indication: ISCHAEMIC STROKE
     Route: 065
     Dates: start: 20140422
  2. ASPIRIN [Concomitant]
  3. ZESTRIL [Concomitant]
  4. COREG [Concomitant]
  5. NORVASC [Concomitant]
  6. CATAPRES [Concomitant]

REACTIONS (3)
  - Hypertension [Recovered/Resolved]
  - Haemorrhagic transformation stroke [Unknown]
  - Restlessness [Unknown]
